FAERS Safety Report 8238795-1 (Version None)
Quarter: 2012Q1

REPORT INFORMATION
  Report Type: 
  Country: None (occurrence: None)
  Receive Date: 20120326
  Receipt Date: 20120314
  Transmission Date: 20120608
  Serious: Yes (Other)
  Sender: FDA-Public Use
  Company Number: 2012MA003390

PATIENT
  Age: 30 Year
  Sex: Female

DRUGS (2)
  1. UNSPECIFIED MEDICATION [Suspect]
     Indication: VERTIGO
  2. GABAPENTIN [Suspect]
     Indication: VERTIGO
     Dates: start: 20110101, end: 20110101

REACTIONS (3)
  - DRUG INEFFECTIVE [None]
  - VERTIGO [None]
  - CONDITION AGGRAVATED [None]
